FAERS Safety Report 7283701-X (Version None)
Quarter: 2011Q1

REPORT INFORMATION
  Report Type: 
  Country: None (occurrence: None)
  Receive Date: 20110209
  Receipt Date: 20110202
  Transmission Date: 20110831
  Serious: Yes (Hospitalization)
  Sender: FDA-Public Use
  Company Number: FR-ROCHE-724569

PATIENT
  Sex: Female
  Weight: 48 kg

DRUGS (11)
  1. PEGINTERFERON ALFA-2A [Suspect]
     Route: 058
     Dates: start: 20091014
  2. LIPANTHYL [Concomitant]
     Route: 048
  3. PEGINTERFERON ALFA-2A [Suspect]
     Dosage: 1 INJECTION PER WEEK.
     Route: 058
     Dates: start: 20091014
  4. TAHOR [Concomitant]
  5. ATARAX [Concomitant]
  6. RIBAVIRIN [Suspect]
     Dosage: FREQUENCY: NOT PROVIDED
     Route: 048
     Dates: start: 20091015
  7. ACETAMINOPHEN [Concomitant]
     Dates: start: 20091014
  8. RIBAVIRIN [Suspect]
     Dosage: FREQUENCY: NOT PROVIDED
     Route: 048
  9. RIBAVIRIN [Suspect]
     Dosage: DOSAGE REDUCED.
     Route: 048
  10. VOLTAREN [Concomitant]
     Dosage: FREQUENCY:QD
  11. NOCTRAN [Concomitant]

REACTIONS (2)
  - ANAEMIA [None]
  - GENERAL PHYSICAL HEALTH DETERIORATION [None]
